FAERS Safety Report 4826826-8 (Version None)
Quarter: 2005Q4

REPORT INFORMATION
  Report Type: 
  Country: None (occurrence: None)
  Receive Date: 20051014
  Receipt Date: 20050630
  Transmission Date: 20060501
  Serious: No
  Sender: FDA-Public Use
  Company Number: 2005SP001709

PATIENT
  Age: 75 Year
  Sex: Male
  Weight: 73.4827 kg

DRUGS (11)
  1. LUNESTA [Suspect]
     Indication: MIDDLE INSOMNIA
     Dosage: 1 MG;HS;ORAL ; 2 MG;HS;ORAL
     Route: 048
     Dates: start: 20050415, end: 20050501
  2. LUNESTA [Suspect]
     Indication: MIDDLE INSOMNIA
     Dosage: 1 MG;HS;ORAL ; 2 MG;HS;ORAL
     Route: 048
     Dates: start: 20050501
  3. AGGRENOX [Concomitant]
  4. CLONIDINE [Concomitant]
  5. LISINOPRIL [Concomitant]
  6. ATENOLOL [Concomitant]
  7. ATORVASTATIN CALCIUM [Concomitant]
  8. FOLIC ACID [Concomitant]
  9. HERBAL PREPARATION [Concomitant]
  10. AMBIEN [Concomitant]
  11. UNISOM [Concomitant]

REACTIONS (1)
  - AMNESIA [None]
